FAERS Safety Report 8621409-6 (Version None)
Quarter: 2012Q3

REPORT INFORMATION
  Report Type: 
  Country: None (occurrence: None)
  Receive Date: 20120824
  Receipt Date: 20120820
  Transmission Date: 20120928
  Serious: No
  Sender: FDA-Public Use
  Company Number: US-PFIZER INC-2012203664

PATIENT
  Age: 63 Year
  Sex: Male
  Weight: 104 kg

DRUGS (11)
  1. VIAGRA [Suspect]
     Dosage: UNK
     Route: 048
  2. OXYCODONE HYDROCHLORIDE [Suspect]
     Indication: PAIN
     Dosage: 5 MG, UNK
     Dates: start: 20120801, end: 20120801
  3. PERCOCET [Suspect]
     Indication: PAIN
     Dosage: 25 MG, UNK
  4. VICODIN [Suspect]
     Indication: PAIN
     Dosage: 7.5 MG, UNK
  5. VICODIN [Suspect]
     Dosage: UNK
  6. PERCOCET [Suspect]
     Dosage: UNK
  7. VIAGRA [Suspect]
     Indication: ERECTILE DYSFUNCTION
     Dosage: 100 MG, UNK
     Route: 048
  8. CELEBREX [Suspect]
     Indication: PAIN
     Dosage: UNK. 2X/DAY
  9. FELDENE [Suspect]
     Indication: PAIN
     Dosage: UNK, DAILY
  10. CELEBREX [Suspect]
     Indication: ANTIINFLAMMATORY THERAPY
     Dosage: UNK
  11. FELDENE [Suspect]
     Indication: ANTIINFLAMMATORY THERAPY
     Dosage: UNK

REACTIONS (3)
  - CIRCUMSTANCE OR INFORMATION CAPABLE OF LEADING TO MEDICATION ERROR [None]
  - DRUG INEFFECTIVE [None]
  - SKIN ULCER [None]
